FAERS Safety Report 14164683 (Version 2)
Quarter: 2017Q4

REPORT INFORMATION
  Report Type: Spontaneous
  Country: US (occurrence: US)
  Receive Date: 20171107
  Receipt Date: 20171116
  Transmission Date: 20180321
  Serious: No
  Sender: FDA-Public Use
  Company Number: US-PFIZER INC-2017478445

PATIENT
  Age: 66 Year
  Sex: Female

DRUGS (1)
  1. IBRANCE [Suspect]
     Active Substance: PALBOCICLIB
     Dosage: 100 MG, UNK

REACTIONS (6)
  - Seasonal allergy [Unknown]
  - Malaise [Unknown]
  - Condition aggravated [Unknown]
  - Immune system disorder [Unknown]
  - Cough [Unknown]
  - Influenza [Unknown]
